FAERS Safety Report 11702544 (Version 1)
Quarter: 2015Q4

REPORT INFORMATION
  Report Type: Spontaneous
  Country: JP (occurrence: JP)
  Receive Date: 20151105
  Receipt Date: 20151105
  Transmission Date: 20160304
  Serious: Yes (Life-Threatening, Hospitalization)
  Sender: FDA-Public Use
  Company Number: JP-ABBVIE-15P-087-1467521-00

PATIENT
  Age: 2 Month
  Sex: Male

DRUGS (8)
  1. VENETLIN [Suspect]
     Active Substance: ALBUTEROL SULFATE
     Indication: PRODUCT USED FOR UNKNOWN INDICATION
     Route: 055
     Dates: start: 20141129, end: 20141130
  2. BAKUMONDOTO [Suspect]
     Active Substance: HERBALS
     Indication: PRODUCT USED FOR UNKNOWN INDICATION
     Route: 065
     Dates: start: 20141129, end: 20141130
  3. MAOTO [Suspect]
     Active Substance: HERBALS
     Indication: PRODUCT USED FOR UNKNOWN INDICATION
     Route: 065
     Dates: start: 20141129
  4. MEPTIN [Suspect]
     Active Substance: PROCATEROL HYDROCHLORIDE
     Indication: PRODUCT USED FOR UNKNOWN INDICATION
     Route: 065
     Dates: start: 20141129, end: 20141130
  5. SYNAGIS [Suspect]
     Active Substance: PALIVIZUMAB
     Indication: PREMATURE BABY
     Route: 030
     Dates: start: 20141002, end: 20141002
  6. SYNAGIS [Suspect]
     Active Substance: PALIVIZUMAB
     Route: 030
     Dates: start: 20141104, end: 20141104
  7. PERIACTIN [Suspect]
     Active Substance: CYPROHEPTADINE HYDROCHLORIDE
     Indication: PRODUCT USED FOR UNKNOWN INDICATION
     Route: 065
     Dates: start: 20141129, end: 20141130
  8. ASVERIN (TIPEPIDINE HIBENZATE) [Suspect]
     Active Substance: TIPEPIDINE HIBENZATE
     Indication: PRODUCT USED FOR UNKNOWN INDICATION
     Route: 065
     Dates: start: 20141129, end: 20141130

REACTIONS (3)
  - Respiratory syncytial virus infection [Recovering/Resolving]
  - Pallor [None]
  - Apnoeic attack [Recovering/Resolving]

NARRATIVE: CASE EVENT DATE: 20141130
